FAERS Safety Report 12592336 (Version 1)
Quarter: 2016Q3

REPORT INFORMATION
  Report Type: Spontaneous
  Country: US (occurrence: None)
  Receive Date: 20160725
  Receipt Date: 20160725
  Transmission Date: 20161109
  Serious: Yes (Life-Threatening)
  Sender: FDA-Public Use
  Company Number: None

PATIENT
  Age: 72 Year
  Sex: Female
  Weight: 54.5 kg

DRUGS (1)
  1. APIXABAN, 2.5 MG [Suspect]
     Active Substance: APIXABAN
     Indication: ATRIAL FIBRILLATION
     Route: 048
     Dates: start: 20160602, end: 20160722

REACTIONS (2)
  - Subarachnoid haemorrhage [None]
  - Injury [None]

NARRATIVE: CASE EVENT DATE: 20160720
